FAERS Safety Report 6493079-7 (Version None)
Quarter: 2009Q4

REPORT INFORMATION
  Report Type: 
  Country: None (occurrence: None)
  Receive Date: 20091214
  Receipt Date: 20091112
  Transmission Date: 20100525
  Serious: No
  Sender: FDA-Public Use
  Company Number: US-BAYER-200937575NA

PATIENT
  Sex: Female

DRUGS (1)
  1. CLIMARA [Suspect]
     Indication: DRUG USE FOR UNKNOWN INDICATION
     Route: 003

REACTIONS (3)
  - CENTRAL OBESITY [None]
  - HYPERHIDROSIS [None]
  - NIGHT SWEATS [None]
